FAERS Safety Report 8443105-0 (Version None)
Quarter: 2012Q2

REPORT INFORMATION
  Report Type: 
  Country: None (occurrence: None)
  Receive Date: 20120615
  Receipt Date: 20120608
  Transmission Date: 20120825
  Serious: Yes (Other)
  Sender: FDA-Public Use
  Company Number: US-BAXTER-2012BAX008163

PATIENT
  Age: 75 Year
  Sex: Male

DRUGS (1)
  1. GLYCINE 1.5% [Suspect]
     Indication: BLADDER IRRIGATION
     Route: 033

REACTIONS (3)
  - ENCEPHALOPATHY [None]
  - RENAL FAILURE ACUTE [None]
  - CONVULSION [None]
